FAERS Safety Report 10752621 (Version 1)
Quarter: 2015Q1

REPORT INFORMATION
  Report Type: Report from Study
  Country: US (occurrence: US)
  Receive Date: 20150130
  Receipt Date: 20150130
  Transmission Date: 20150721
  Serious: No
  Sender: FDA-Public Use
  Company Number: US-ABBVIE-14P-163-1271631-00

PATIENT
  Age: 50 Year
  Sex: Female

DRUGS (2)
  1. LEUPROLIDE ACETATE DEPOT [Suspect]
     Active Substance: LEUPROLIDE ACETATE
     Indication: ENDOMETRIOSIS
     Dates: start: 20140805
  2. ALEVE [Concomitant]
     Active Substance: NAPROXEN SODIUM
     Indication: MIGRAINE

REACTIONS (2)
  - Abdominal pain [Not Recovered/Not Resolved]
  - Back pain [Not Recovered/Not Resolved]

NARRATIVE: CASE EVENT DATE: 201401
